FAERS Safety Report 16647875 (Version 2)
Quarter: 2019Q4

REPORT INFORMATION
  Report Type: Spontaneous
  Country: DE (occurrence: DE)
  Receive Date: 20190730
  Receipt Date: 20191015
  Transmission Date: 20200122
  Serious: Yes (Hospitalization, Other)
  Sender: FDA-Public Use
  Company Number: DE-SA-2019SA199452

PATIENT
  Age: 33 Year
  Sex: Female

DRUGS (3)
  1. LEMTRADA [Suspect]
     Active Substance: ALEMTUZUMAB
     Dosage: 12 MG
     Route: 041
     Dates: start: 201512, end: 201512
  2. DESOGESTREL [Concomitant]
     Active Substance: DESOGESTREL
     Indication: CONTRACEPTION
     Dosage: UNK UNK, QD
     Route: 048
  3. LEMTRADA [Suspect]
     Active Substance: ALEMTUZUMAB
     Dosage: 12 MG
     Route: 041
     Dates: start: 20141201

REACTIONS (13)
  - Encephalomyelitis [Unknown]
  - Pain [Unknown]
  - Ovarian cyst [Unknown]
  - Vaginal haemorrhage [Unknown]
  - Proctalgia [Recovering/Resolving]
  - Endometriosis [Not Recovered/Not Resolved]
  - Pancreatitis [Unknown]
  - Bartholin^s cyst [Unknown]
  - Abdominal pain [Recovered/Resolved]
  - Frequent bowel movements [Unknown]
  - Cervix carcinoma stage 0 [Recovered/Resolved]
  - Constipation [Unknown]
  - Cyst [Recovered/Resolved]

NARRATIVE: CASE EVENT DATE: 201801
